FAERS Safety Report 7818875 (Version 3)
Quarter: 2014Q3

REPORT INFORMATION
  Report Type: Spontaneous
  Country: US (occurrence: US)
  Receive Date: 20110218
  Receipt Date: 20140721
  Transmission Date: 20150326
  Serious: Yes (Other)
  Sender: FDA-Public Use
  Company Number: US-ROCHE-737538

PATIENT
  Age: 25 Year
  Sex: Female

DRUGS (9)
  1. TYLENOL [Concomitant]
     Active Substance: ACETAMINOPHEN
  2. ALEVE [Concomitant]
     Active Substance: NAPROXEN SODIUM
  3. ACCUTANE [Suspect]
     Active Substance: ISOTRETINOIN
     Route: 065
     Dates: start: 20080109, end: 20080601
  4. CLARAVIS [Suspect]
     Active Substance: ISOTRETINOIN
     Indication: ACNE
     Dosage: DISPENSED ON 29 MAR 2008
     Route: 065
  5. ACCUTANE [Suspect]
     Active Substance: ISOTRETINOIN
     Indication: ACNE
     Route: 065
     Dates: start: 198501, end: 198503
  6. ACCUTANE [Suspect]
     Active Substance: ISOTRETINOIN
     Route: 065
     Dates: start: 1986, end: 1986
  7. AMNESTEEM [Suspect]
     Active Substance: ISOTRETINOIN
     Indication: ACNE
     Route: 065
     Dates: start: 200801, end: 20080701
  8. LOPERAMIDE [Concomitant]
     Active Substance: LOPERAMIDE
  9. ACCUTANE [Suspect]
     Active Substance: ISOTRETINOIN
     Route: 065
     Dates: start: 199808, end: 199910

REACTIONS (17)
  - Lip dry [Unknown]
  - Skin exfoliation [Unknown]
  - Myalgia [Unknown]
  - Dry eye [Unknown]
  - Fatigue [Unknown]
  - Colitis ulcerative [Unknown]
  - Back pain [Unknown]
  - Nasal dryness [Unknown]
  - Inflammatory bowel disease [Unknown]
  - Intestinal haemorrhage [Unknown]
  - Arthralgia [Unknown]
  - Neck pain [Unknown]
  - Gastrointestinal injury [Unknown]
  - Sunburn [Unknown]
  - Headache [Unknown]
  - Insomnia [Unknown]
  - Epistaxis [Unknown]

NARRATIVE: CASE EVENT DATE: 198610
